FAERS Safety Report 18658475 (Version 2)
Quarter: 2021Q2

REPORT INFORMATION
  Report Type: Report from Study
  Country: JP (occurrence: JP)
  Receive Date: 20201223
  Receipt Date: 20210525
  Transmission Date: 20210717
  Serious: Yes (Other)
  Sender: FDA-Public Use
  Company Number: JP-SEATTLE GENETICS-2020SGN05487

PATIENT
  Age: 71 Year
  Sex: Male
  Weight: 67 kg

DRUGS (15)
  1. FILGRASTIM [Concomitant]
     Active Substance: FILGRASTIM
     Indication: COLONY STIMULATING FACTOR THERAPY
     Dosage: UNK
     Route: 065
     Dates: start: 20201029, end: 20201105
  2. BRENTUXIMAB VEDOTIN?MPI [Suspect]
     Active Substance: BRENTUXIMAB VEDOTIN
     Indication: HODGKIN^S DISEASE STAGE IV
     Dosage: 1.2 MILLIGRAM/KILOGRAM
     Route: 042
     Dates: start: 20201027, end: 20201027
  3. VINBLASTINE SULFATE. [Suspect]
     Active Substance: VINBLASTINE SULFATE
     Dosage: 4.1 MILLIGRAM/SQ. METER
     Route: 065
     Dates: start: 20210224
  4. DACARBAZINE. [Suspect]
     Active Substance: DACARBAZINE
     Dosage: 235 MILLIGRAM/SQ. METER
     Route: 065
     Dates: start: 20201110
  5. DOXORUBICIN HYDROCHLORIDE. [Suspect]
     Active Substance: DOXORUBICIN HYDROCHLORIDE
     Indication: HODGKIN^S DISEASE STAGE IV
     Dosage: 25 MILLIGRAM/SQ. METER
     Route: 065
     Dates: start: 20201027, end: 20201027
  6. VINBLASTINE SULFATE. [Suspect]
     Active Substance: VINBLASTINE SULFATE
     Indication: HODGKIN^S DISEASE STAGE IV
     Dosage: 6 MILLIGRAM/SQ. METER
     Route: 065
     Dates: start: 20201027, end: 20201027
  7. DOXORUBICIN HYDROCHLORIDE. [Suspect]
     Active Substance: DOXORUBICIN HYDROCHLORIDE
     Dosage: 20.6 MILLIGRAM/SQ. METER
     Route: 065
     Dates: start: 20210105, end: 20210209
  8. VINBLASTINE SULFATE. [Suspect]
     Active Substance: VINBLASTINE SULFATE
     Dosage: 4.1 MILLIGRAM/SQ. METER
     Route: 065
     Dates: start: 20201110, end: 20201222
  9. DACARBAZINE. [Suspect]
     Active Substance: DACARBAZINE
     Indication: HODGKIN^S DISEASE STAGE IV
     Dosage: 250 MILLIGRAM/SQ. METER
     Route: 065
     Dates: start: 20201027, end: 20201027
  10. LEVOFLOXACIN HEMIHYDRATE [Concomitant]
     Active Substance: LEVOFLOXACIN
     Indication: INFECTION PROPHYLAXIS
     Dosage: UNK
     Route: 065
     Dates: start: 20201105, end: 20201123
  11. BRENTUXIMAB VEDOTIN?MPI [Suspect]
     Active Substance: BRENTUXIMAB VEDOTIN
     Dosage: 0.83 MILLIGRAM/KILOGRAM
     Route: 042
     Dates: start: 20201110
  12. DOXORUBICIN HYDROCHLORIDE. [Suspect]
     Active Substance: DOXORUBICIN HYDROCHLORIDE
     Dosage: 17.6 MILLIGRAM/SQ. METER
     Route: 065
     Dates: start: 20201110, end: 20201222
  13. DOXORUBICIN HYDROCHLORIDE. [Suspect]
     Active Substance: DOXORUBICIN HYDROCHLORIDE
     Dosage: 17.6 MILLIGRAM/SQ. METER
     Route: 065
     Dates: start: 20210224
  14. G LASTA [Concomitant]
     Active Substance: PEGFILGRASTIM
     Indication: COLONY STIMULATING FACTOR THERAPY
     Dosage: UNK
     Route: 065
     Dates: start: 20201112
  15. VINBLASTINE SULFATE. [Suspect]
     Active Substance: VINBLASTINE SULFATE
     Dosage: 4.7 MILLIGRAM/SQ. METER
     Route: 065
     Dates: start: 20210105, end: 20210209

REACTIONS (1)
  - Neutrophil count decreased [Recovered/Resolved]

NARRATIVE: CASE EVENT DATE: 20201105
